FAERS Safety Report 6407225-4 (Version None)
Quarter: 2009Q4

REPORT INFORMATION
  Report Type: 
  Country: None (occurrence: None)
  Receive Date: 20091020
  Receipt Date: 20091019
  Transmission Date: 20100525
  Serious: Yes (Other)
  Sender: FDA-Public Use
  Company Number: A0812338A

PATIENT
  Age: 47 Year
  Sex: Female
  Weight: 94 kg

DRUGS (3)
  1. ALLI [Suspect]
     Route: 048
     Dates: start: 20090814, end: 20091016
  2. LISINOPRIL [Concomitant]
  3. METOPROLOL [Concomitant]

REACTIONS (6)
  - BLOOD PRESSURE INCREASED [None]
  - HAEMATURIA [None]
  - NEPHROLITHIASIS [None]
  - PAIN [None]
  - STEATORRHOEA [None]
  - TREATMENT NONCOMPLIANCE [None]
